FAERS Safety Report 6792393-5 (Version None)
Quarter: 2010Q2

REPORT INFORMATION
  Report Type: 
  Country: None (occurrence: None)
  Receive Date: 20100624
  Receipt Date: 20080729
  Transmission Date: 20101027
  Serious: No
  Sender: FDA-Public Use
  Company Number: US-PFIZER INC-2008063632

PATIENT
  Age: 86 Year
  Sex: Male

DRUGS (2)
  1. GEODON [Suspect]
     Route: 042
     Dates: start: 20080729
  2. SEROQUEL [Concomitant]
     Dates: start: 20080728

REACTIONS (2)
  - INCORRECT ROUTE OF DRUG ADMINISTRATION [None]
  - SEDATION [None]
